FAERS Safety Report 6050709-1 (Version None)
Quarter: 2009Q1

REPORT INFORMATION
  Report Type: 
  Country: None (occurrence: None)
  Receive Date: 20090126
  Receipt Date: 20090114
  Transmission Date: 20090719
  Serious: Yes (Life-Threatening, Hospitalization, Other)
  Sender: FDA-Public Use
  Company Number: JP-PFIZER INC-2008072946

PATIENT

DRUGS (10)
  1. SUNITINIB MALATE [Suspect]
     Indication: RENAL CANCER
     Dosage: 50 MG, 1X/DAY
     Route: 048
     Dates: start: 20080812, end: 20080826
  2. SUNITINIB MALATE [Suspect]
     Dosage: 37.5 MG, 1X/DAY
     Dates: start: 20080924, end: 20081008
  3. ONON [Concomitant]
  4. VALSARTAN [Concomitant]
  5. HOKUNALIN [Concomitant]
  6. AMLODIPINE [Concomitant]
  7. HERBAL PREPARATION [Concomitant]
  8. LASIX [Concomitant]
     Route: 048
     Dates: start: 20080820
  9. ALDACTONE [Concomitant]
  10. GASTER OD [Concomitant]

REACTIONS (9)
  - ANAEMIA [None]
  - ANOREXIA [None]
  - BLOOD UREA INCREASED [None]
  - C-REACTIVE PROTEIN INCREASED [None]
  - HYPERURICAEMIA [None]
  - HYPOALBUMINAEMIA [None]
  - OEDEMA PERIPHERAL [None]
  - PLATELET COUNT DECREASED [None]
  - THROMBOCYTOPENIA [None]
